FAERS Safety Report 7859558-2 (Version None)
Quarter: 2011Q4

REPORT INFORMATION
  Report Type: 
  Country: None (occurrence: None)
  Receive Date: 20111026
  Receipt Date: 20111026
  Transmission Date: 20120403
  Serious: No
  Sender: FDA-Public Use
  Company Number: None

PATIENT
  Sex: Male
  Weight: 71 kg

DRUGS (12)
  1. LOPERANIDE HCL [Concomitant]
  2. IRINOTECAN HCL [Suspect]
     Dosage: 100 MG
  3. PROMETHAZINE [Concomitant]
  4. LORAZEPAM [Concomitant]
  5. PROCHLORPERAZINE [Concomitant]
  6. AREPITANT [Concomitant]
  7. DEXAMETHASONE [Concomitant]
  8. ACETAMINOPHEN [Concomitant]
  9. OMEPRAZOLE [Concomitant]
  10. ASPIRIN [Concomitant]
  11. CHLORPHENIRAMINE-PSE-IBUPRUFEN [Concomitant]
  12. CISPLATIN [Suspect]
     Dosage: 61 MG

REACTIONS (5)
  - THROMBOCYTOPENIA [None]
  - NEUTROPENIA [None]
  - LYMPHOPENIA [None]
  - ANAEMIA [None]
  - LEUKOPENIA [None]
